FAERS Safety Report 7319020-2 (Version None)
Quarter: 2011Q1

REPORT INFORMATION
  Report Type: 
  Country: None (occurrence: None)
  Receive Date: 20110228
  Receipt Date: 20110214
  Transmission Date: 20110831
  Serious: Yes (Hospitalization)
  Sender: FDA-Public Use
  Company Number: DE-PFIZER INC-2011041587

PATIENT
  Age: 15 Year
  Sex: Female
  Weight: 49 kg

DRUGS (3)
  1. PANTOZOL [Suspect]
     Dosage: 40 MG
     Dates: start: 20110213, end: 20110213
  2. SINUPRET [Suspect]
     Dosage: UNK
     Dates: start: 20110213, end: 20110213
  3. ALCOHOL [Suspect]
     Dosage: UNK
     Dates: start: 20110213, end: 20110213

REACTIONS (4)
  - VOMITING [None]
  - INTENTIONAL OVERDOSE [None]
  - SUICIDAL IDEATION [None]
  - DIZZINESS [None]
